FAERS Safety Report 6258428-3 (Version None)
Quarter: 2009Q3

REPORT INFORMATION
  Report Type: 
  Country: None (occurrence: None)
  Receive Date: 20090707
  Receipt Date: 20090625
  Transmission Date: 20100115
  Serious: Yes (Death, Hospitalization)
  Sender: FDA-Public Use
  Company Number: NO-PFIZER INC-2008100731

PATIENT
  Age: 48 Year

DRUGS (15)
  1. BLINDED *NO SUBJECT DRUG [Suspect]
     Indication: NON-SMALL CELL LUNG CANCER
     Dosage: UNK
     Dates: start: 20081006, end: 20081120
  2. BLINDED *PLACEBO [Suspect]
     Indication: NON-SMALL CELL LUNG CANCER
     Dosage: UNK
     Dates: start: 20081006, end: 20081120
  3. BLINDED SUNITINIB MALATE [Suspect]
     Indication: NON-SMALL CELL LUNG CANCER
     Dosage: UNK
     Dates: start: 20081006, end: 20081120
  4. *ERLOTINIB [Suspect]
     Indication: NON-SMALL CELL LUNG CANCER
     Dosage: 150 MG, 1X/DAY
     Dates: start: 20081006, end: 20081120
  5. OXYNORM [Concomitant]
     Dates: start: 20081003
  6. OXYCONTIN [Concomitant]
     Dates: start: 20081003
  7. ACETAMINOPHEN [Concomitant]
     Dates: start: 20080912
  8. SOBRIL [Concomitant]
     Dates: start: 20080501
  9. LEVONORGESTREL [Concomitant]
     Dates: start: 20040415
  10. IMOVANE [Concomitant]
     Dates: start: 20080912
  11. AFIPRAN [Concomitant]
     Dates: start: 20081003
  12. HYDROKORTISON [Concomitant]
     Dates: start: 20081016
  13. DUPHALAC [Concomitant]
     Dates: start: 20081016
  14. ANTIBIOTICS FOR TOPICAL USE [Concomitant]
     Dates: start: 20081103
  15. NAVOBAN [Concomitant]
     Dates: start: 20081117

REACTIONS (5)
  - DECREASED APPETITE [None]
  - DISEASE PROGRESSION [None]
  - NAUSEA [None]
  - NON-SMALL CELL LUNG CANCER [None]
  - WEIGHT DECREASED [None]
